FAERS Safety Report 20628226 (Version 1)
Quarter: 2022Q1

REPORT INFORMATION
  Report Type: Spontaneous
  Country: US (occurrence: None)
  Receive Date: 20220323
  Receipt Date: 20220323
  Transmission Date: 20220423
  Serious: Yes (Other)
  Sender: FDA-Public Use
  Company Number: US-ROCHE-3051127

PATIENT
  Age: 55 Year
  Sex: Female

DRUGS (4)
  1. HERCEPTIN [Suspect]
     Active Substance: TRASTUZUMAB
     Indication: Breast cancer stage I
     Route: 041
     Dates: start: 20210719
  2. PERJETA [Suspect]
     Active Substance: PERTUZUMAB
     Indication: Breast cancer stage I
     Route: 042
     Dates: start: 20210719, end: 20211109
  3. TAXOTERE [Suspect]
     Active Substance: DOCETAXEL
     Indication: Breast cancer stage I
     Route: 042
     Dates: start: 20210719, end: 20211109
  4. CARBOPLATIN [Suspect]
     Active Substance: CARBOPLATIN
     Indication: Breast cancer stage I
     Route: 042
     Dates: start: 20210719, end: 20211109

REACTIONS (9)
  - Alopecia [Unknown]
  - Rash [Unknown]
  - Tooth discolouration [Unknown]
  - Diarrhoea [Unknown]
  - Fatigue [Unknown]
  - Tachycardia [Unknown]
  - Erythema [Unknown]
  - Dyspnoea [Unknown]
  - COVID-19 [Unknown]

NARRATIVE: CASE EVENT DATE: 20210719
